FAERS Safety Report 8030872-3 (Version None)
Quarter: 2012Q1

REPORT INFORMATION
  Report Type: 
  Country: None (occurrence: None)
  Receive Date: 20120109
  Receipt Date: 20120104
  Transmission Date: 20120608
  Serious: Yes (Life-Threatening)
  Sender: FDA-Public Use
  Company Number: GB-PFIZER INC-2011251121

PATIENT
  Age: 40 Year
  Sex: Male

DRUGS (5)
  1. PIPERACILLIN AND TAZOBACTAM [Suspect]
     Indication: PROPHYLAXIS
     Dosage: 4.5 G, UNK
     Route: 042
     Dates: start: 20110416, end: 20110416
  2. MYCOPHENOLATE MOFETIL (CELLCEPT) [Concomitant]
     Dosage: 750 MG, 2X/DAY
  3. RANITIDINE [Concomitant]
     Dosage: 150 MG, 1X/DAY
  4. PROGRAF [Concomitant]
     Dosage: 2 MG, 2X/DAY
  5. ACETYLSALICYLIC ACID [Concomitant]
     Dosage: 75 MG, 1X/DAY

REACTIONS (4)
  - LIP SWELLING [None]
  - PARAESTHESIA [None]
  - RASH [None]
  - SWOLLEN TONGUE [None]
